FAERS Safety Report 5268616-0 (Version None)
Quarter: 2007Q1

REPORT INFORMATION
  Report Type: 
  Country: None (occurrence: None)
  Receive Date: 20070313
  Receipt Date: 20070227
  Transmission Date: 20070707
  Serious: Yes (Death, Hospitalization)
  Sender: FDA-Public Use
  Company Number: 2007030011

PATIENT
  Age: 53 Year
  Sex: Female

DRUGS (1)
  1. D-PENICILLAMINE [Suspect]
     Indication: SYSTEMIC SCLEROSIS
     Dosage: 100 MG MG/DAY

REACTIONS (15)
  - ACUTE RESPIRATORY FAILURE [None]
  - ANOREXIA [None]
  - ARTERIAL DISORDER [None]
  - BRONCHOPULMONARY ASPERGILLOSIS [None]
  - FATIGUE [None]
  - HAEMODIALYSIS [None]
  - HEADACHE [None]
  - HYPERTENSION [None]
  - LUNG CONSOLIDATION [None]
  - MICROANGIOPATHIC HAEMOLYTIC ANAEMIA [None]
  - MULTI-ORGAN FAILURE [None]
  - PULMONARY ALVEOLAR HAEMORRHAGE [None]
  - RENAL IMPAIRMENT [None]
  - RENAL NECROSIS [None]
  - THROMBOCYTOPENIA [None]
